FAERS Safety Report 6511035-7 (Version None)
Quarter: 2009Q4

REPORT INFORMATION
  Report Type: 
  Country: None (occurrence: None)
  Receive Date: 20091222
  Receipt Date: 20090217
  Transmission Date: 20100525
  Serious: No
  Sender: FDA-Public Use
  Company Number: US-ASTRAZENECA-2009UW04513

PATIENT
  Age: 847 Month
  Sex: Female
  Weight: 81.6 kg

DRUGS (4)
  1. CRESTOR [Suspect]
     Indication: BLOOD CHOLESTEROL INCREASED
     Route: 048
     Dates: start: 20081101
  2. ADVIL [Concomitant]
  3. SYNTHROID [Concomitant]
     Indication: THYROID DISORDER
  4. INDERAL [Concomitant]
     Indication: PALPITATIONS

REACTIONS (1)
  - PAIN IN EXTREMITY [None]
